FAERS Safety Report 17000190 (Version 1)
Quarter: 2019Q4

REPORT INFORMATION
  Report Type: Spontaneous
  Country: US (occurrence: US)
  Receive Date: 20191106
  Receipt Date: 20191106
  Transmission Date: 20200122
  Serious: No
  Sender: FDA-Public Use
  Company Number: US-BEH-2019108703

PATIENT
  Sex: Female

DRUGS (1)
  1. CYTOGAM [Suspect]
     Active Substance: HUMAN CYTOMEGALOVIRUS IMMUNE GLOBULIN
     Indication: ASTHMA
     Dosage: UNK
     Route: 065

REACTIONS (3)
  - No adverse event [Unknown]
  - Product supply issue [Unknown]
  - Product use in unapproved indication [Unknown]
